FAERS Safety Report 6052558-7 (Version None)
Quarter: 2009Q1

REPORT INFORMATION
  Report Type: 
  Country: None (occurrence: None)
  Receive Date: 20090121
  Receipt Date: 20090107
  Transmission Date: 20090719
  Serious: Yes (Hospitalization)
  Sender: FDA-Public Use
  Company Number: B0554154A

PATIENT
  Age: 65 Year
  Sex: Female

DRUGS (9)
  1. AVANDIA [Suspect]
     Indication: TYPE 2 DIABETES MELLITUS
     Dosage: 4 MG, TWICE PER DAY;
     Dates: start: 20060301, end: 20070501
  2. AMLODIPINE [Concomitant]
  3. FEXOFENADINE HYDROCHLORIDE [Concomitant]
  4. FRUSEMIDE [Concomitant]
  5. RABEPRAZOLE SODIUM [Concomitant]
  6. GLIPIZIDE [Concomitant]
  7. LOSARTAN POTASSIUM [Concomitant]
  8. SIMVASTATIN [Concomitant]
  9. PHEN/FEN [Concomitant]

REACTIONS (11)
  - AORTIC STENOSIS [None]
  - BLOOD PRESSURE INCREASED [None]
  - CARDIAC FAILURE CONGESTIVE [None]
  - CARDIAC MURMUR [None]
  - CHEST PAIN [None]
  - FLUID OVERLOAD [None]
  - MITRAL VALVE INCOMPETENCE [None]
  - PULMONARY HYPERTENSION [None]
  - RIGHT ATRIAL DILATATION [None]
  - TRICUSPID VALVE INCOMPETENCE [None]
  - VENTRICULAR HYPERTROPHY [None]
